FAERS Safety Report 9549142 (Version 1)
Quarter: 2013Q3

REPORT INFORMATION
  Report Type: Spontaneous
  Country: US (occurrence: US)
  Receive Date: 20130924
  Receipt Date: 20130924
  Transmission Date: 20140515
  Serious: Yes (Other)
  Sender: FDA-Public Use
  Company Number: US-PFIZER INC-2013273976

PATIENT
  Age: 62 Year
  Sex: Female
  Weight: 74.38 kg

DRUGS (2)
  1. FLECTOR [Suspect]
     Indication: BURSITIS
     Dosage: UNK, 2X/DAY
     Route: 062
     Dates: start: 20130919
  2. SYNTHROID [Concomitant]
     Indication: HYPOTHYROIDISM
     Dosage: 50 UG, DAILY

REACTIONS (6)
  - Off label use [Not Recovered/Not Resolved]
  - Aphagia [Unknown]
  - Choking [Unknown]
  - Abdominal pain upper [Not Recovered/Not Resolved]
  - Gastrooesophageal reflux disease [Recovered/Resolved]
  - Nausea [Unknown]
